FAERS Safety Report 7573297-7 (Version None)
Quarter: 2011Q2

REPORT INFORMATION
  Report Type: 
  Country: None (occurrence: None)
  Receive Date: 20110627
  Receipt Date: 20110614
  Transmission Date: 20111010
  Serious: Yes (Other)
  Sender: FDA-Public Use
  Company Number: PHHY2010RO72476

PATIENT
  Sex: Male

DRUGS (3)
  1. ZOMETA [Suspect]
     Indication: METASTASES TO BONE
     Dosage: 4 MG, QMO
  2. TAXOTERE [Concomitant]
     Dosage: 100 MG TO 3 WEEKS
  3. ZOLADEX [Concomitant]
     Dosage: 1 DF, QMO

REACTIONS (9)
  - ORAL PAIN [None]
  - MASTICATION DISORDER [None]
  - ORAL DISORDER [None]
  - BONE SWELLING [None]
  - SWELLING [None]
  - BONE DISORDER [None]
  - OSTEONECROSIS OF JAW [None]
  - PAIN IN JAW [None]
  - ORAL MUCOSAL ERYTHEMA [None]
